FAERS Safety Report 20552916 (Version 1)
Quarter: 2022Q1

REPORT INFORMATION
  Report Type: Spontaneous
  Country: US (occurrence: US)
  Receive Date: 20220304
  Receipt Date: 20220304
  Transmission Date: 20220423
  Serious: No
  Sender: FDA-Public Use
  Company Number: US-drreddys-SPO/USA/22/0147409

PATIENT
  Age: 19 Year
  Sex: Female

DRUGS (2)
  1. ACCUTANE [Suspect]
     Active Substance: ISOTRETINOIN
     Indication: Product used for unknown indication
     Dosage: RMA ISSUE DATE: 21 JANUARY 2022 03:59:22 PM, 20 DECEMBER 2021 03:33:58 PM, 18 NOVEMBER 2021 04:21:57
  2. ACCUTANE [Suspect]
     Active Substance: ISOTRETINOIN
     Dosage: RMA ISSUE DATE: 13 JULY 2021 11:12:35 AM.

REACTIONS (1)
  - Liver function test increased [Unknown]
